FAERS Safety Report 13012567 (Version 1)
Quarter: 2016Q4

REPORT INFORMATION
  Report Type: Spontaneous
  Country: US (occurrence: US)
  Receive Date: 20161209
  Receipt Date: 20161209
  Transmission Date: 20170207
  Serious: Yes (Other)
  Sender: FDA-Public Use
  Company Number: None

PATIENT
  Age: 75 Year
  Sex: Male

DRUGS (1)
  1. NEFAZODONE 50 MG [Suspect]
     Active Substance: NEFAZODONE
     Indication: GENERALISED ANXIETY DISORDER
     Dosage: 50 MG X2 (100MG) ONCE DAILY QHS PO
     Route: 048
     Dates: start: 20160527, end: 20161117

REACTIONS (3)
  - Tachypnoea [None]
  - Dyspnoea exertional [None]
  - Somatic symptom disorder [None]

NARRATIVE: CASE EVENT DATE: 20161103
